FAERS Safety Report 11935721 (Version 1)
Quarter: 2016Q1

REPORT INFORMATION
  Report Type: Spontaneous
  Country: VE (occurrence: VE)
  Receive Date: 20160121
  Receipt Date: 20160121
  Transmission Date: 20160526
  Serious: Yes (Other)
  Sender: FDA-Public Use
  Company Number: PHHY2016VE007542

PATIENT
  Sex: Female

DRUGS (3)
  1. VANNAIR [Concomitant]
     Active Substance: BUDESONIDE\FORMOTEROL FUMARATE DIHYDRATE
     Indication: ASTHMA
     Route: 065
  2. FORADIL [Suspect]
     Active Substance: FORMOTEROL FUMARATE
     Indication: ASTHMA
     Dosage: 24 UG, QD
     Route: 055
  3. MIFLONIDE [Suspect]
     Active Substance: BUDESONIDE
     Indication: ASTHMA
     Dosage: 800 UG, QD
     Route: 055

REACTIONS (3)
  - Respiratory tract congestion [Recovering/Resolving]
  - Insomnia [Recovering/Resolving]
  - Asthmatic crisis [Recovering/Resolving]
